FAERS Safety Report 6871889-1 (Version None)
Quarter: 2010Q3

REPORT INFORMATION
  Report Type: 
  Country: None (occurrence: None)
  Receive Date: 20100723
  Receipt Date: 20100707
  Transmission Date: 20110219
  Serious: Yes (Other)
  Sender: FDA-Public Use
  Company Number: DE-SANOFI-AVENTIS-2010SA039068

PATIENT
  Age: 79 Year
  Sex: Male
  Weight: 90 kg

DRUGS (5)
  1. MULTAQ [Suspect]
     Indication: ATRIAL FIBRILLATION
     Route: 048
     Dates: start: 20100629, end: 20100707
  2. ASPIRIN [Concomitant]
     Indication: ARTERIOSCLEROSIS
     Route: 048
  3. CANDESARTAN [Concomitant]
     Route: 048
  4. PHENPROCOUMON [Concomitant]
     Indication: ATRIAL FIBRILLATION
     Dosage: DOSAGE: ACCORDING TO INR
     Route: 048
  5. SIMVASTATIN [Concomitant]
     Route: 048

REACTIONS (2)
  - BLOOD CREATININE INCREASED [None]
  - GLOMERULAR FILTRATION RATE DECREASED [None]
